FAERS Safety Report 16707722 (Version 2)
Quarter: 2019Q3

REPORT INFORMATION
  Report Type: Spontaneous
  Country: US (occurrence: US)
  Receive Date: 20190815
  Receipt Date: 20190903
  Transmission Date: 20191004
  Serious: Yes (Death, Other)
  Sender: FDA-Public Use
  Company Number: US-SHIRE-US201926142

PATIENT
  Age: 45 Year
  Sex: Female

DRUGS (1)
  1. GATTEX [Suspect]
     Active Substance: TEDUGLUTIDE\WATER
     Indication: SHORT-BOWEL SYNDROME
     Dosage: 0.2055 UNK, 1X/DAY:QD
     Route: 058
     Dates: start: 20190412

REACTIONS (1)
  - Death [Fatal]

NARRATIVE: CASE EVENT DATE: 20190807
